FAERS Safety Report 6922682-2 (Version None)
Quarter: 2010Q3

REPORT INFORMATION
  Report Type: 
  Country: None (occurrence: None)
  Receive Date: 20100813
  Receipt Date: 20100806
  Transmission Date: 20110219
  Serious: Yes (Hospitalization)
  Sender: FDA-Public Use
  Company Number: PHHY2010US52699

PATIENT

DRUGS (3)
  1. FANAPT [Suspect]
     Dosage: 4 MG, UNK
     Route: 048
  2. ARICEPT [Concomitant]
  3. TRAZODONE HCL [Concomitant]

REACTIONS (2)
  - AGITATION [None]
  - RESTLESSNESS [None]
